FAERS Safety Report 11619982 (Version 2)
Quarter: 2015Q4

REPORT INFORMATION
  Report Type: Spontaneous
  Country: US (occurrence: US)
  Receive Date: 20151012
  Receipt Date: 20151116
  Transmission Date: 20160304
  Serious: No
  Sender: FDA-Public Use
  Company Number: US-PFIZER INC-2015337006

PATIENT
  Age: 61 Year
  Sex: Female

DRUGS (1)
  1. GABAPENTIN. [Suspect]
     Active Substance: GABAPENTIN
     Dosage: TWELVE PILLS A DAY (THREE OR FOUR TIMES A DAY)

REACTIONS (9)
  - Somnolence [Unknown]
  - Hypersomnia [Unknown]
  - Nausea [Unknown]
  - Scab [Unknown]
  - Constipation [Unknown]
  - Drug intolerance [Unknown]
  - Neuropathy peripheral [Unknown]
  - Drug ineffective [Unknown]
  - Malaise [Unknown]
